FAERS Safety Report 7051331-0 (Version None)
Quarter: 2010Q4

REPORT INFORMATION
  Report Type: 
  Country: None (occurrence: None)
  Receive Date: 20101019
  Receipt Date: 20101005
  Transmission Date: 20110411
  Serious: Yes (Hospitalization, Other)
  Sender: FDA-Public Use
  Company Number: FR-GENZYME-FLUD-1000288

PATIENT
  Sex: Male

DRUGS (4)
  1. FLUDARA [Suspect]
     Indication: STEM CELL TRANSPLANT
     Dosage: 30 MG/M2, UNK
     Route: 042
  2. FLUDARA [Suspect]
     Indication: NON-HODGKIN'S LYMPHOMA RECURRENT
  3. ZEVALIN [Suspect]
     Indication: STEM CELL TRANSPLANT
     Dosage: 0.4 MCI/KG
     Route: 042
     Dates: start: 20090831, end: 20090831
  4. ZEVALIN [Suspect]
     Indication: NON-HODGKIN'S LYMPHOMA RECURRENT

REACTIONS (7)
  - BRONCHOPULMONARY ASPERGILLOSIS [None]
  - CHILLS [None]
  - DEVICE RELATED INFECTION [None]
  - LYMPHOCYTOSIS [None]
  - PYREXIA [None]
  - RESPIRATORY FAILURE [None]
  - RHINOVIRUS INFECTION [None]
